FAERS Safety Report 23265483 (Version 1)
Quarter: 2023Q4

REPORT INFORMATION
  Report Type: Spontaneous
  Country: US (occurrence: US)
  Receive Date: 20231206
  Receipt Date: 20231206
  Transmission Date: 20240110
  Serious: No
  Sender: FDA-Public Use
  Company Number: US-STERISCIENCE B.V.-2023-ST-001476

PATIENT
  Age: 3 Decade
  Sex: Female

DRUGS (8)
  1. LABETALOL [Suspect]
     Active Substance: LABETALOL\LABETALOL HYDROCHLORIDE
     Indication: Hypertension
     Dosage: 40 MILLIGRAM
     Route: 042
  2. BUPIVACAINE [Suspect]
     Active Substance: BUPIVACAINE
     Indication: Spinal anaesthesia
     Dosage: 12 MILLIGRAM
     Route: 037
  3. MAGNESIUM SULFATE [Suspect]
     Active Substance: MAGNESIUM SULFATE\MAGNESIUM SULFATE HEPTAHYDRATE
     Indication: Seizure prophylaxis
     Dosage: 2 GRAM, QH
     Route: 042
  4. BETAMETHASONE [Suspect]
     Active Substance: BETAMETHASONE\BETAMETHASONE DIPROPIONATE
     Indication: Maternal therapy to enhance foetal lung maturity
     Dosage: 2 DOSES
     Route: 065
  5. FENTANYL [Suspect]
     Active Substance: FENTANYL\FENTANYL CITRATE
     Indication: Spinal anaesthesia
     Dosage: 20 MICROGRAM
     Route: 037
  6. MORPHINE [Suspect]
     Active Substance: MORPHINE
     Indication: Spinal anaesthesia
     Dosage: 100 MICROGRAM
     Route: 037
  7. ALBUMIN HUMAN [Suspect]
     Active Substance: ALBUMIN HUMAN
     Indication: Blood volume expansion
     Dosage: UNK
     Route: 042
  8. PLASMA-LYTE A [Suspect]
     Active Substance: MAGNESIUM CHLORIDE\POTASSIUM CHLORIDE\SODIUM ACETATE\SODIUM CHLORIDE\SODIUM GLUCONATE
     Indication: Blood volume expansion
     Dosage: UNK
     Route: 042

REACTIONS (4)
  - Premature delivery [Unknown]
  - Maternal exposure during pregnancy [Unknown]
  - Maternal exposure during delivery [Unknown]
  - Incorrect dose administered [Unknown]
